FAERS Safety Report 4394014-8 (Version None)
Quarter: 2004Q3

REPORT INFORMATION
  Report Type: 
  Country: None (occurrence: None)
  Receive Date: 20040709
  Receipt Date: 20040708
  Transmission Date: 20050211
  Serious: Yes (Hospitalization)
  Sender: FDA-Public Use
  Company Number: FR-MERCK-0407USA00672

PATIENT
  Age: 64 Year
  Sex: Female

DRUGS (12)
  1. DIALGIREX [Suspect]
     Route: 048
     Dates: end: 20040614
  2. PIASCLEDINE [Suspect]
     Route: 048
     Dates: end: 20040614
  3. NEXIUM [Suspect]
     Route: 065
     Dates: start: 20040610, end: 20040614
  4. ESTRADIOL [Concomitant]
     Route: 065
     Dates: end: 20040614
  5. PREVISCAN [Concomitant]
     Route: 048
  6. FLUOXETINE [Concomitant]
     Route: 048
  7. L-THYROXIN [Concomitant]
     Route: 048
  8. LORAZEPAM [Concomitant]
     Route: 048
     Dates: end: 20040614
  9. SANMIGRAN [Suspect]
     Route: 048
     Dates: end: 20040614
  10. ZOCOR [Suspect]
     Route: 048
     Dates: end: 20040614
  11. VASTAREL [Suspect]
     Route: 048
     Dates: end: 20040614
  12. STILNOX [Concomitant]
     Route: 048
     Dates: end: 20040614

REACTIONS (2)
  - OEDEMA PERIPHERAL [None]
  - WEIGHT INCREASED [None]
